FAERS Safety Report 7861385-7 (Version None)
Quarter: 2011Q4

REPORT INFORMATION
  Report Type: 
  Country: None (occurrence: None)
  Receive Date: 20111027
  Receipt Date: 20111020
  Transmission Date: 20120403
  Serious: Yes (Hospitalization)
  Sender: FDA-Public Use
  Company Number: FR-NAPPMUNDI-GBR-2011-0008945

PATIENT
  Sex: Female

DRUGS (13)
  1. NICARDIPINE HCL [Concomitant]
     Dosage: UNK
     Dates: start: 20110817
  2. MYOLASTAN [Suspect]
     Dosage: UNK
     Route: 048
     Dates: start: 20110820, end: 20110830
  3. ROVAMYCIN [Suspect]
     Indication: PRODUCT USED FOR UNKNOWN INDICATION
     Dosage: UNK
     Route: 065
     Dates: start: 20110825, end: 20110826
  4. MORPHINE SULFATE [Suspect]
     Indication: PAIN
     Dosage: UNK UNK, DAILY
     Route: 048
     Dates: start: 20110820, end: 20110828
  5. AUGMENTIN '125' [Suspect]
     Indication: PRODUCT USED FOR UNKNOWN INDICATION
     Dosage: 500/62.5 MG, UNK
     Route: 065
     Dates: start: 20110825, end: 20110825
  6. LOVENOX [Concomitant]
     Dosage: UNK
  7. POTASSIUM CHLORIDE [Concomitant]
     Dosage: UNK
     Dates: start: 20110817, end: 20110827
  8. PHENYTOIN SODIUM [Concomitant]
  9. KEPPRA [Concomitant]
     Dosage: UNK
     Dates: start: 20110818
  10. ACETAMINOPHEN [Concomitant]
     Dosage: UNK
     Dates: start: 20110828
  11. PIPERACILLIN AND TAZOBACTAM [Suspect]
     Indication: PRODUCT USED FOR UNKNOWN INDICATION
     Dosage: UNK
     Route: 065
     Dates: start: 20110825, end: 20110830
  12. ACUPAN [Suspect]
     Indication: PRODUCT USED FOR UNKNOWN INDICATION
     Dosage: UNK
     Route: 065
     Dates: start: 20110819, end: 20110830
  13. PRIMPERAN TAB [Concomitant]
     Dosage: UNK
     Dates: start: 20110821, end: 20110828

REACTIONS (3)
  - PYREXIA [None]
  - HYPERSENSITIVITY [None]
  - LUNG DISORDER [None]
